FAERS Safety Report 12265698 (Version 2)
Quarter: 2016Q2

REPORT INFORMATION
  Report Type: Spontaneous
  Country: US (occurrence: US)
  Receive Date: 20160413
  Receipt Date: 20160502
  Transmission Date: 20160815
  Serious: Yes (Other)
  Sender: FDA-Public Use
  Company Number: US-ECLAT PHARMACEUTICALS-2016ECL00002

PATIENT
  Age: 51 Year
  Sex: Female
  Weight: 74 kg

DRUGS (27)
  1. BLOXIVERZ [Suspect]
     Active Substance: NEOSTIGMINE METHYLSULFATE
     Indication: NEUROMUSCULAR BLOCKADE REVERSAL
     Dosage: 5 MG, ONCE
     Route: 040
     Dates: start: 20160331, end: 20160331
  2. LOSARTAN HYDROCHLOROTHIAZIDE [Concomitant]
     Active Substance: HYDROCHLOROTHIAZIDE\LOSARTAN POTASSIUM
  3. ROCURONIUM [Concomitant]
     Active Substance: ROCURONIUM BROMIDE
     Dosage: 10 MG, UNK
     Route: 042
     Dates: start: 20160331, end: 20160331
  4. GENTAMICIN. [Concomitant]
     Active Substance: GENTAMICIN
  5. FENTANYL. [Concomitant]
     Active Substance: FENTANYL
     Dosage: UNK
     Dates: start: 20160331, end: 20160331
  6. ROCURONIUM [Concomitant]
     Active Substance: ROCURONIUM BROMIDE
     Dosage: 30 MG, UNK
     Route: 042
     Dates: start: 20160331, end: 20160331
  7. ONDANSETRON [Concomitant]
     Active Substance: ONDANSETRON
     Dosage: UNK
     Dates: start: 20160331, end: 20160331
  8. WELLBUTRIN [Concomitant]
     Active Substance: BUPROPION HYDROCHLORIDE
  9. LORATADINE. [Concomitant]
     Active Substance: LORATADINE
  10. ADVIL [Concomitant]
     Active Substance: IBUPROFEN
  11. PRILOSEC [Concomitant]
     Active Substance: OMEPRAZOLE MAGNESIUM
  12. PROPOFOL. [Concomitant]
     Active Substance: PROPOFOL
     Dosage: UNK
     Dates: start: 20160331, end: 20160331
  13. SINGULAIR [Concomitant]
     Active Substance: MONTELUKAST SODIUM
  14. MIDAZOLAM [Concomitant]
     Active Substance: MIDAZOLAM\MIDAZOLAM HYDROCHLORIDE
     Dosage: UNK
     Dates: start: 20160331, end: 20160331
  15. SUCCINYLCHOLINE [Concomitant]
     Active Substance: SUCCINYLCHOLINE
     Dosage: 100 MG, UNK
     Route: 042
     Dates: start: 20160331, end: 20160331
  16. DEXAMETHASONE. [Concomitant]
     Active Substance: DEXAMETHASONE
     Dosage: UNK
     Dates: start: 20160331, end: 20160331
  17. GLYCOPYYROLATE [Suspect]
     Active Substance: GLYCOPYRROLATE
     Indication: NEUROMUSCULAR BLOCKADE REVERSAL
     Dosage: 0.9 MG, ONCE
     Route: 042
     Dates: start: 20160331, end: 20160331
  18. ACETAMINOPHEN\HYDROCODONE BITARTRATE [Concomitant]
     Active Substance: ACETAMINOPHEN\HYDROCODONE BITARTRATE
  19. LIRAGLUTIDE [Concomitant]
     Active Substance: LIRAGLUTIDE
  20. LIDOCAINE. [Concomitant]
     Active Substance: LIDOCAINE
     Dosage: UNK
     Dates: start: 20160331, end: 20160331
  21. ROCURONIUM [Concomitant]
     Active Substance: ROCURONIUM BROMIDE
     Dosage: 10 MG, UNK
     Dates: start: 20160331, end: 20160331
  22. CLINDAMYCIN [Concomitant]
     Active Substance: CLINDAMYCIN\CLINDAMYCIN PHOSPHATE
     Dosage: UNK
     Dates: start: 20160331, end: 20160331
  23. GLUCOTROL [Concomitant]
     Active Substance: GLIPIZIDE
  24. ZOFRAN [Concomitant]
     Active Substance: ONDANSETRON HYDROCHLORIDE
  25. LIQUIFILM TEARS [Concomitant]
     Active Substance: POLYVINYL ALCOHOL
  26. PRAVACHOL [Concomitant]
     Active Substance: PRAVASTATIN SODIUM
     Dosage: UNK
  27. ROCURONIUM [Concomitant]
     Active Substance: ROCURONIUM BROMIDE
     Dosage: 10 MG, UNK
     Dates: start: 20160331, end: 20160331

REACTIONS (2)
  - Heart rate increased [Recovered/Resolved]
  - Drug ineffective [Recovered/Resolved]

NARRATIVE: CASE EVENT DATE: 20160331
